FAERS Safety Report 23169998 (Version 1)
Quarter: 2023Q4

REPORT INFORMATION
  Report Type: Spontaneous
  Country: CA (occurrence: None)
  Receive Date: 20231110
  Receipt Date: 20231110
  Transmission Date: 20240110
  Serious: Yes (Other)
  Sender: FDA-Public Use
  Company Number: CA-ROCHE-3449793

PATIENT
  Age: 72 Year
  Sex: Male

DRUGS (4)
  1. BEVACIZUMAB [Suspect]
     Active Substance: BEVACIZUMAB
     Indication: Neovascular age-related macular degeneration
     Route: 042
  2. BEOVU [Suspect]
     Active Substance: BROLUCIZUMAB-DBLL
     Indication: Product used for unknown indication
     Dosage: SINGLE USE
     Route: 050
  3. EYLEA [Suspect]
     Active Substance: AFLIBERCEPT
     Indication: Product used for unknown indication
     Route: 065
  4. VISUDYNE [Suspect]
     Active Substance: VERTEPORFIN
     Indication: Product used for unknown indication
     Route: 042

REACTIONS (5)
  - Blindness [Unknown]
  - Retinal oedema [Unknown]
  - Subretinal fluid [Unknown]
  - Therapeutic response decreased [Unknown]
  - Visual acuity reduced [Unknown]
